FAERS Safety Report 9640618 (Version 2)
Quarter: 2013Q4

REPORT INFORMATION
  Report Type: Report from Study
  Country: US (occurrence: US)
  Receive Date: 20131023
  Receipt Date: 20131023
  Transmission Date: 20140711
  Serious: No
  Sender: FDA-Public Use
  Company Number: US-ABBVIE-12P-163-1002895-00

PATIENT
  Age: 36 Year
  Sex: Female
  Weight: 68.1 kg

DRUGS (4)
  1. LUPRON DEPOT [Suspect]
     Indication: ENDOMETRIOSIS
     Route: 030
     Dates: start: 20120916
  2. LUPRON DEPOT [Suspect]
     Indication: CERVICAL DYSPLASIA
  3. NORETHINDRONE ACETATE [Concomitant]
     Indication: PRODUCT USED FOR UNKNOWN INDICATION
     Route: 048
  4. TRAZADONE [Concomitant]
     Indication: INSOMNIA
     Dosage: AT NIGHT
     Route: 048

REACTIONS (5)
  - Nightmare [Recovering/Resolving]
  - Insomnia [Recovering/Resolving]
  - Daydreaming [Recovering/Resolving]
  - Alopecia [Recovering/Resolving]
  - Feeling drunk [Unknown]
